FAERS Safety Report 4955706-2 (Version None)
Quarter: 2006Q1

REPORT INFORMATION
  Report Type: 
  Country: None (occurrence: None)
  Receive Date: 20060328
  Receipt Date: 20060309
  Transmission Date: 20060701
  Serious: Yes (Life-Threatening, Disabling)
  Sender: FDA-Public Use
  Company Number: JP-AVENTIS-200610775JP

PATIENT
  Age: 43 Year
  Sex: Female
  Weight: 46 kg

DRUGS (8)
  1. ALLEGRA [Suspect]
     Indication: RHINITIS ALLERGIC
     Dosage: DOSE: 2 TABLETS
     Route: 048
     Dates: start: 20060304, end: 20060307
  2. TOMIRON [Concomitant]
     Indication: LARYNGOPHARYNGITIS
     Dosage: DOSE: 3 TABLETS
     Route: 048
     Dates: start: 20060304, end: 20060307
  3. TRANEXAMIC ACID [Concomitant]
     Indication: LARYNGOPHARYNGITIS
     Dosage: DOSE: 3 CAPSULES
     Route: 048
     Dates: start: 20060304, end: 20060307
  4. METHISTA [Concomitant]
     Indication: LARYNGOPHARYNGITIS
     Dosage: DOSE: 6 TABLETS
     Route: 048
     Dates: start: 20060304, end: 20060307
  5. CONFATANIN [Concomitant]
     Indication: LARYNGOPHARYNGITIS
     Dosage: DOSE: 1 TABLET
     Route: 048
     Dates: start: 20060304, end: 20060307
  6. VASOLAN [Concomitant]
  7. DEPAS [Concomitant]
  8. FERROMIA [Concomitant]

REACTIONS (2)
  - LOSS OF CONSCIOUSNESS [None]
  - MALAISE [None]
